FAERS Safety Report 7420820-9 (Version None)
Quarter: 2011Q2

REPORT INFORMATION
  Report Type: 
  Country: None (occurrence: None)
  Receive Date: 20110418
  Receipt Date: 20110407
  Transmission Date: 20111010
  Serious: Yes (Death)
  Sender: FDA-Public Use
  Company Number: CN-ROCHE-770023

PATIENT
  Age: 68 Year
  Sex: Male

DRUGS (5)
  1. IRINOTECAN [Concomitant]
     Indication: RECTAL CANCER METASTATIC
     Dosage: COMPLETED EIGHT THERAPY CYCLES TOTALLY
     Dates: start: 20080508, end: 20090417
  2. CALCIUM FOLINATE [Concomitant]
     Indication: RECTAL CANCER METASTATIC
     Dosage: COMPLETED 8 THERAPY CYCLES TOTALLY
     Dates: start: 20080508, end: 20090417
  3. FLUOROURACIL [Concomitant]
     Indication: RECTAL CANCER METASTATIC
     Dosage: COMPLETED 8 THERAPY CYCLES TOTALLY
     Dates: start: 20080508, end: 20090417
  4. ANTIHYPERTENSIVE NOS [Concomitant]
     Indication: HYPERTENSION
  5. BEVACIZUMAB [Suspect]
     Indication: RECTAL CANCER METASTATIC
     Dosage: REPORTED DOSING AMOUNT:5MG/KG(330MG).COMPLETED 8 THERAPY CYCLES TOTALLY.
     Route: 065
     Dates: start: 20080508, end: 20090417

REACTIONS (2)
  - EPISTAXIS [None]
  - DEATH [None]
